FAERS Safety Report 5273442-2 (Version None)
Quarter: 2007Q1

REPORT INFORMATION
  Report Type: 
  Country: None (occurrence: None)
  Receive Date: 20061219
  Receipt Date: 20060905
  Transmission Date: 20070707
  Serious: Yes (Hospitalization)
  Sender: FDA-Public Use
  Company Number: US-JNJFOC-20060801097

PATIENT
  Age: 18 Year
  Sex: Female
  Weight: 68.0396 kg

DRUGS (7)
  1. ORTHO EVRA [Suspect]
     Indication: CONTRACEPTION
     Dosage: TRANSDERMAL
     Route: 062
     Dates: start: 20030801, end: 20040526
  2. ZANTAC [Concomitant]
  3. EFFEXOR XR [Concomitant]
  4. PHRENILIN (PHRENILIN) [Concomitant]
  5. ZOMIG [Concomitant]
  6. ZYRTEC [Concomitant]
  7. HYDROCODONE (HYDROCODONE) [Concomitant]

REACTIONS (3)
  - CEREBROVASCULAR ACCIDENT [None]
  - MIGRAINE [None]
  - VIITH NERVE PARALYSIS [None]
